FAERS Safety Report 8348838 (Version 6)
Quarter: 2012Q4

REPORT INFORMATION
  Report Type: Report from Study
  Country: FI (occurrence: FI)
  Receive Date: 20120123
  Receipt Date: 20120924
  Transmission Date: 20130627
  Serious: Yes (Death, Hospitalization)
  Sender: FDA-Public Use
  Company Number: FI-SANOFI-AVENTIS-2012SA003626

PATIENT
  Age: 66 Year
  Sex: Male
  Weight: 71 kg

DRUGS (3)
  1. DOCETAXEL [Suspect]
     Indication: PROSTATE CARCINOMA
     Route: 042
     Dates: start: 20120112, end: 20120112
  2. DOCETAXEL [Suspect]
     Indication: PROSTATE CARCINOMA
     Route: 042
     Dates: start: 20111109, end: 20111109
  3. PREDNISONE [Suspect]
     Indication: PROSTATE CARCINOMA
     Route: 048
     Dates: start: 20111109, end: 20120115

REACTIONS (1)
  - Cardiac failure [Fatal]
